FAERS Safety Report 8426941-6 (Version None)
Quarter: 2012Q2

REPORT INFORMATION
  Report Type: 
  Country: None (occurrence: None)
  Receive Date: 20120611
  Receipt Date: 20120607
  Transmission Date: 20120825
  Serious: Yes (Hospitalization)
  Sender: FDA-Public Use
  Company Number: KR-ROCHE-1060170

PATIENT
  Sex: Female
  Weight: 46 kg

DRUGS (5)
  1. PERTUZUMAB [Suspect]
     Indication: GASTRIC CANCER
     Dosage: DATE OF MOST RECENT DOSE OF PRIOR TO AE:17/MAY/2012, LAST DOSE: 420MG
     Route: 042
     Dates: start: 20120329
  2. XELODA [Suspect]
     Indication: GASTRIC CANCER
     Dosage: ON 31 MAY 2012, THE PATIENT RECEIVED LAST DOSE PRIOR TO ADVERSE EVENT, LAST DOSE TAKEN: 750 MG/M2
     Route: 048
     Dates: start: 20120329
  3. CISPLATIN [Suspect]
     Indication: GASTRIC CANCER
     Dosage: LAST DOSE PRIOR TO AE ONSET: 17/MAY/2012, LAST DOSE: 60MG/M2
     Route: 042
     Dates: start: 20120329
  4. CLARITHROMYCIN [Concomitant]
  5. HERCEPTIN [Suspect]
     Indication: GASTRIC CANCER
     Dosage: MOST RECENT DOSE: 17/MAY/2012, LAST DOSE: 282MG
     Route: 042
     Dates: start: 20120329

REACTIONS (5)
  - VOMITING [None]
  - ILEUS [None]
  - RENAL FAILURE ACUTE [None]
  - DIARRHOEA [None]
  - VIRAL INFECTION [None]
